FAERS Safety Report 5730411-3 (Version None)
Quarter: 2008Q2

REPORT INFORMATION
  Report Type: 
  Country: None (occurrence: None)
  Receive Date: 20080505
  Receipt Date: 20080505
  Transmission Date: 20081010
  Serious: Yes (Disabling)
  Sender: FDA-Public Use
  Company Number: None

PATIENT
  Age: 51 Year
  Sex: Female
  Weight: 59.8748 kg

DRUGS (2)
  1. CHANTIX [Suspect]
     Indication: SMOKING CESSATION THERAPY
     Dosage: PERSCRIBED  1/AM 1/PM
     Dates: start: 20080211, end: 20080314
  2. CHANTIX [Suspect]
     Indication: SMOKING CESSATION THERAPY
     Dosage: PERSCRIBED  1/AM 1/PM
     Dates: start: 20080328, end: 20080418

REACTIONS (1)
  - DEPRESSION [None]
